FAERS Safety Report 7412929-0 (Version None)
Quarter: 2011Q2

REPORT INFORMATION
  Report Type: 
  Country: None (occurrence: None)
  Receive Date: 20110404
  Receipt Date: 20110324
  Transmission Date: 20111010
  Serious: Yes (Other)
  Sender: FDA-Public Use
  Company Number: 029415

PATIENT
  Age: 53 Year
  Sex: Male

DRUGS (2)
  1. ANTI-ASTHMATICS [Concomitant]
  2. XYZALL /01530201/ (XYZALL) [Suspect]
     Dosage: 5 MG, QD, AT NIGHT, ORAL
     Route: 048
     Dates: start: 20110301, end: 20110316

REACTIONS (3)
  - VISUAL IMPAIRMENT [None]
  - BLOOD PRESSURE DECREASED [None]
  - PAPILLOEDEMA [None]
